FAERS Safety Report 5016035-4 (Version None)
Quarter: 2006Q2

REPORT INFORMATION
  Report Type: 
  Country: None (occurrence: None)
  Receive Date: 20060531
  Receipt Date: 20060531
  Transmission Date: 20061013
  Serious: Yes (Other)
  Sender: FDA-Public Use
  Company Number: None

PATIENT
  Age: 70 Year
  Sex: Male
  Weight: 79 kg

DRUGS (3)
  1. LEVAQUIN [Suspect]
     Indication: SEPSIS
     Dosage: 500 MG 24 HOURS IV DRIP
     Route: 041
     Dates: start: 20060506, end: 20060516
  2. LEVAQUIN [Suspect]
     Indication: URINARY TRACT INFECTION
     Dosage: 500 MG 24 HOURS IV DRIP
     Route: 041
     Dates: start: 20060506, end: 20060516
  3. LEVAQUIN [Suspect]

REACTIONS (2)
  - OEDEMA PERIPHERAL [None]
  - TENDON RUPTURE [None]
